FAERS Safety Report 9307789 (Version 1)
Quarter: 2013Q2

REPORT INFORMATION
  Report Type: Spontaneous
  Country: US (occurrence: US)
  Receive Date: 20130524
  Receipt Date: 20130524
  Transmission Date: 20140414
  Serious: Yes (Hospitalization)
  Sender: FDA-Public Use
  Company Number: US-PFIZER INC-2013155837

PATIENT
  Age: 68 Year
  Sex: Female
  Weight: 93.42 kg

DRUGS (5)
  1. NORVASC [Suspect]
     Indication: HYPERTENSION
     Dosage: 5 MG, DAILY
  2. LYRICA [Suspect]
     Indication: FIBROMYALGIA
     Dosage: 100 MG, 2X/DAY
     Dates: start: 201106
  3. LYRICA [Suspect]
     Indication: NEUROPATHY PERIPHERAL
  4. CLONIDINE [Suspect]
     Indication: HYPERTENSION
     Dosage: 150 UG, DAILY
  5. INSULIN PUMP [Concomitant]
     Indication: DIABETES MELLITUS
     Dosage: UNK

REACTIONS (4)
  - Pneumonia [Unknown]
  - Pleurisy [Unknown]
  - Blood pressure inadequately controlled [Unknown]
  - Pharyngeal oedema [Not Recovered/Not Resolved]
